FAERS Safety Report 13889827 (Version 1)
Quarter: 2017Q3

REPORT INFORMATION
  Report Type: Spontaneous
  Country: US (occurrence: US)
  Receive Date: 20170822
  Receipt Date: 20170822
  Transmission Date: 20171127
  Serious: No
  Sender: FDA-Public Use
  Company Number: US-GLAXOSMITHKLINE-US2017128586

PATIENT
  Age: 75 Year
  Sex: Female

DRUGS (3)
  1. MILK THISTLE [Concomitant]
     Active Substance: MILK THISTLE
  2. VITAMIN C [Concomitant]
     Active Substance: ASCORBIC ACID
  3. ANORO ELLIPTA [Suspect]
     Active Substance: UMECLIDINIUM BROMIDE\VILANTEROL TRIFENATATE
     Indication: EMPHYSEMA
     Dosage: 1 PUFF(S), QD
     Route: 055
     Dates: start: 201608

REACTIONS (2)
  - Drug ineffective [Recovering/Resolving]
  - Chest discomfort [Recovering/Resolving]

NARRATIVE: CASE EVENT DATE: 20170817
